FAERS Safety Report 6519258-8 (Version None)
Quarter: 2009Q4

REPORT INFORMATION
  Report Type: 
  Country: None (occurrence: None)
  Receive Date: 20091228
  Receipt Date: 20091217
  Transmission Date: 20100525
  Serious: Yes (Other)
  Sender: FDA-Public Use
  Company Number: CO-JNJFOC-20091206423

PATIENT
  Age: 29 Year
  Sex: Female

DRUGS (7)
  1. REMICADE [Suspect]
     Indication: ANKYLOSING SPONDYLITIS
     Route: 042
  2. METHOCARBAMOL [Concomitant]
  3. ACETAMINOPHEN [Concomitant]
  4. TRAMADOL HCL [Concomitant]
  5. NAPROXEN [Concomitant]
  6. HYDROCORTISONE [Concomitant]
     Dosage: 1 AMPULE
  7. TAVEGYL [Concomitant]

REACTIONS (5)
  - CHOKING SENSATION [None]
  - COUGH [None]
  - DYSPNOEA [None]
  - ERYTHEMA [None]
  - INFUSION RELATED REACTION [None]
